FAERS Safety Report 8305034-2 (Version None)
Quarter: 2012Q2

REPORT INFORMATION
  Report Type: 
  Country: None (occurrence: None)
  Receive Date: 20120412
  Receipt Date: 20120326
  Transmission Date: 20120825
  Serious: Yes (Other)
  Sender: FDA-Public Use
  Company Number: 2011030611

PATIENT
  Age: 40 Year
  Sex: Female
  Weight: 113.8529 kg

DRUGS (48)
  1. PERCOCET [Concomitant]
  2. MELOXICAM (MELXOICAM) [Concomitant]
  3. TYLENOL WITH CODEINE (PANADEINE CO) [Concomitant]
  4. MIRALAX [Concomitant]
  5. PRO-AIR HFA (PROCATEROL HYDROCHLORIDE) [Concomitant]
  6. CLARITIN [Concomitant]
  7. REQUIP [Concomitant]
  8. CALCIUM CARBONATE [Concomitant]
  9. HIZENTRA [Suspect]
     Indication: HYPOGLOBULINAEMIA
     Dosage: SEE IMAGE
     Route: 058
     Dates: start: 20111210
  10. HIZENTRA [Suspect]
     Indication: IMMUNODEFICIENCY
     Dosage: SEE IMAGE
     Route: 058
     Dates: start: 20111210
  11. HIZENTRA [Suspect]
     Indication: HYPOGLOBULINAEMIA
     Dosage: SEE IMAGE
     Route: 058
     Dates: start: 20111210
  12. HIZENTRA [Suspect]
     Indication: IMMUNODEFICIENCY
     Dosage: SEE IMAGE
     Route: 058
     Dates: start: 20111210
  13. HIZENTRA [Suspect]
     Indication: HYPOGLOBULINAEMIA
     Dosage: SEE IMAGE
     Route: 058
     Dates: start: 20110313
  14. HIZENTRA [Suspect]
     Indication: IMMUNODEFICIENCY
     Dosage: SEE IMAGE
     Route: 058
     Dates: start: 20110313
  15. HIZENTRA [Suspect]
     Indication: HYPOGLOBULINAEMIA
     Dosage: SEE IMAGE
     Route: 058
     Dates: start: 20120310
  16. HIZENTRA [Suspect]
     Indication: IMMUNODEFICIENCY
     Dosage: SEE IMAGE
     Route: 058
     Dates: start: 20120310
  17. HIZENTRA [Suspect]
     Indication: HYPOGLOBULINAEMIA
     Dosage: SEE IMAGE
     Route: 058
     Dates: start: 20111210
  18. HIZENTRA [Suspect]
     Indication: IMMUNODEFICIENCY
     Dosage: SEE IMAGE
     Route: 058
     Dates: start: 20111210
  19. HIZENTRA [Suspect]
  20. OBETROL [Concomitant]
  21. CLONAZEPPAM (CLONAZEPAM) [Concomitant]
  22. SPIRIVA [Concomitant]
  23. HIZENTRA [Suspect]
  24. HIZENTRA [Suspect]
  25. HIZENTRA [Suspect]
  26. SINGULAIR (MONTELULAST) [Concomitant]
  27. LIPITOR [Concomitant]
  28. BUSPAR [Concomitant]
  29. SYMBICORT (BUDESONIDE W/FORMOTERL FUMARATE) [Concomitant]
  30. RANITDINE (RANITIDINE) [Concomitant]
  31. LEVOTHYROXINE SODIUM [Concomitant]
  32. HYDROCODONE BITARTRATE + ACETAMINOPHEN [Concomitant]
  33. SAVELLA [Concomitant]
  34. HIZENTRA [Suspect]
  35. TOPAMAX [Concomitant]
  36. WELLBUTRIN XL [Concomitant]
  37. ESTRADIOL [Concomitant]
  38. PREVACID [Concomitant]
  39. MULTIVITAMIN (MULTIVITAMIN /00831701) [Concomitant]
  40. HIZENTRA [Suspect]
  41. HIZENTRA [Suspect]
  42. XENICAL [Concomitant]
  43. ABILIFY (ARIPIORAZOLE) [Concomitant]
  44. OPTIVAR [Concomitant]
  45. ALBUTEROL [Concomitant]
  46. DOCUSATE POTASSIUM (DOCUSATE POTASSIUM) [Concomitant]
  47. MAGOX (MAGNESIUM) [Concomitant]
  48. IRON (IRON) [Concomitant]

REACTIONS (3)
  - CANDIDIASIS [None]
  - UPPER RESPIRATORY TRACT INFECTION [None]
  - SINUSITIS [None]
